FAERS Safety Report 8444774-1 (Version None)
Quarter: 2012Q2

REPORT INFORMATION
  Report Type: 
  Country: None (occurrence: None)
  Receive Date: 20120618
  Receipt Date: 20120612
  Transmission Date: 20120825
  Serious: Yes (Death)
  Sender: FDA-Public Use
  Company Number: AU-ASTRAZENECA-2012SE38979

PATIENT
  Sex: Female

DRUGS (8)
  1. VALIUM [Concomitant]
  2. FLUOXETINE [Concomitant]
  3. SEROQUEL XR [Suspect]
     Route: 048
     Dates: start: 20120605
  4. AMITRIPTYLINE HCL [Concomitant]
  5. SEROQUEL XR [Suspect]
     Route: 048
  6. ACETAMINOPHEN W/ CODEINE [Concomitant]
  7. INDERAL [Concomitant]
  8. PERINDOPRIL ERBUMINE [Concomitant]

REACTIONS (1)
  - DEATH [None]
